FAERS Safety Report 19442198 (Version 1)
Quarter: 2021Q2

REPORT INFORMATION
  Report Type: Report from Study
  Country: JP (occurrence: JP)
  Receive Date: 20210621
  Receipt Date: 20210621
  Transmission Date: 20210717
  Serious: Yes (Other)
  Sender: FDA-Public Use
  Company Number: JP-PFIZER INC-2021684443

PATIENT

DRUGS (5)
  1. VINCRISTINE [Suspect]
     Active Substance: VINCRISTINE
     Indication: NON-HODGKIN^S LYMPHOMA REFRACTORY
     Dosage: 1 MG, DAILY (INFUSION ON DAY 2)
     Route: 041
  2. HYDROCORTISONE SODIUM SUCCINATE [Suspect]
     Active Substance: HYDROCORTISONE SODIUM SUCCINATE
     Indication: NON-HODGKIN^S LYMPHOMA REFRACTORY
     Dosage: 100 MG, DAILY (INFUSION ON DAY 2)
     Route: 041
  3. METHOTREXATE SODIUM. [Suspect]
     Active Substance: METHOTREXATE SODIUM
     Indication: NON-HODGKIN^S LYMPHOMA REFRACTORY
     Dosage: 20 MG, DAILY (ON DAY 1)
     Route: 048
  4. ETOPOSIDE. [Suspect]
     Active Substance: ETOPOSIDE
     Indication: NON-HODGKIN^S LYMPHOMA REFRACTORY
     Dosage: 25 MG, DAILY (ON DAYS 3 AND 4)
     Route: 048
  5. SOBUZOXANE [Suspect]
     Active Substance: SOBUZOXANE
     Indication: NON-HODGKIN^S LYMPHOMA REFRACTORY
     Dosage: 400 MG, DAILY (ON DAYS 3 AND 4)
     Route: 048

REACTIONS (1)
  - Sepsis [Unknown]
